FAERS Safety Report 10872873 (Version 1)
Quarter: 2015Q1

REPORT INFORMATION
  Report Type: Spontaneous
  Country: US (occurrence: None)
  Receive Date: 20150223
  Receipt Date: 20150223
  Transmission Date: 20150721
  Serious: No
  Sender: FDA-Public Use
  Company Number: None

PATIENT
  Age: 65 Year
  Sex: Male
  Weight: 116.7 kg

DRUGS (1)
  1. BACITRACIN. [Suspect]
     Active Substance: BACITRACIN
     Indication: CATARACT OPERATION
     Dosage: ONE DROPS, QID, EYE
     Route: 047
     Dates: start: 20141104, end: 20141105

REACTIONS (2)
  - Eye pain [None]
  - Eye swelling [None]

NARRATIVE: CASE EVENT DATE: 20141105
